FAERS Safety Report 5987786-X (Version None)
Quarter: 2008Q4

REPORT INFORMATION
  Report Type: 
  Country: None (occurrence: None)
  Receive Date: 20081209
  Receipt Date: 20080218
  Transmission Date: 20090506
  Serious: No
  Sender: FDA-Public Use
  Company Number: US-BAYER-200814831NA

PATIENT
  Age: 59 Year
  Sex: Female
  Weight: 77 kg

DRUGS (3)
  1. CLIMARA PRO [Suspect]
     Indication: DRUG USE FOR UNKNOWN INDICATION
     Route: 062
  2. ZYRTEC [Concomitant]
     Indication: SEASONAL ALLERGY
  3. MONOCYCLIN (FOR ROSACEA) [Concomitant]
     Indication: ROSACEA

REACTIONS (1)
  - HEADACHE [None]
